FAERS Safety Report 4878170-0 (Version None)
Quarter: 2005Q4

REPORT INFORMATION
  Report Type: 
  Country: None (occurrence: None)
  Receive Date: 20051209
  Receipt Date: 20050415
  Transmission Date: 20060501
  Serious: Yes (Death, Other)
  Sender: FDA-Public Use
  Company Number: USA-2003-0011156

PATIENT
  Age: 44 Year
  Sex: Male
  Weight: 93.9 kg

DRUGS (4)
  1. OXYCONTIN [Suspect]
  2. COCAINE (COCAINE) [Suspect]
  3. CITALOPRAM (CITALOPRAM) [Suspect]
  4. EPHEDRINE SUL CAP [Suspect]

REACTIONS (2)
  - DRUG ABUSER [None]
  - OVERDOSE [None]
